FAERS Safety Report 11595680 (Version 1)
Quarter: 2015Q4

REPORT INFORMATION
  Report Type: Spontaneous
  Country: US (occurrence: US)
  Receive Date: 20151006
  Receipt Date: 20151006
  Transmission Date: 20160304
  Serious: Yes (Hospitalization, Other)
  Sender: FDA-Public Use
  Company Number: US-ASTRAZENECA-2015SE94120

PATIENT
  Sex: Female
  Weight: 85.7 kg

DRUGS (2)
  1. BYETTA [Suspect]
     Active Substance: EXENATIDE
     Indication: TYPE 2 LEPRA REACTION
     Route: 065
  2. BYDUREON [Suspect]
     Active Substance: EXENATIDE
     Indication: TYPE 2 DIABETES MELLITUS
     Route: 058

REACTIONS (6)
  - Renal failure [Unknown]
  - Weight decreased [Unknown]
  - Injection site pruritus [Not Recovered/Not Resolved]
  - Myocardial infarction [Unknown]
  - Injection site mass [Not Recovered/Not Resolved]
  - Drug dose omission [Unknown]
